FAERS Safety Report 6754360-7 (Version None)
Quarter: 2010Q2

REPORT INFORMATION
  Report Type: 
  Country: None (occurrence: None)
  Receive Date: 20100601
  Receipt Date: 20100520
  Transmission Date: 20101027
  Serious: Yes (Hospitalization)
  Sender: FDA-Public Use
  Company Number: LEO-2010-00453

PATIENT
  Age: 28 Year
  Sex: Female
  Weight: 90 kg

DRUGS (3)
  1. INNOHEP [Suspect]
     Indication: DEEP VEIN THROMBOSIS
     Dosage: 15.75 IU (15.75 IU, 1 IN 1 D), SUBCUTANEOUS
     Route: 058
     Dates: start: 20051129, end: 20060715
  2. DEXAMETHASONE [Concomitant]
  3. PARACETAMOL (PARACETAMOL) [Concomitant]

REACTIONS (5)
  - DRUG EXPOSURE DURING PREGNANCY [None]
  - PAIN IN EXTREMITY [None]
  - POSTPARTUM HAEMORRHAGE [None]
  - THREATENED LABOUR [None]
  - THROMBOCYTOPENIA [None]
